FAERS Safety Report 10865890 (Version 4)
Quarter: 2018Q1

REPORT INFORMATION
  Report Type: Report from Study
  Country: BR (occurrence: BR)
  Receive Date: 20150224
  Receipt Date: 20180322
  Transmission Date: 20180508
  Serious: Yes (Other)
  Sender: FDA-Public Use
  Company Number: PHHY2015BR021856

PATIENT
  Age: 85 Year
  Sex: Female
  Weight: 41 kg

DRUGS (4)
  1. LABIRIN [Concomitant]
     Active Substance: BETAHISTINE
     Indication: LABYRINTHITIS
     Dosage: 1 DF, UNK
     Route: 048
  2. ACLASTA [Suspect]
     Active Substance: ZOLEDRONIC ACID
     Indication: OSTEOPOROSIS
     Dosage: 1 DF (5 MG/100 ML), Q12MO
     Route: 042
     Dates: start: 2015, end: 2015
  3. EXODUS (ESCITALOPRAM OXALATE) [Concomitant]
     Active Substance: ESCITALOPRAM OXALATE
     Indication: ANXIETY
     Dosage: 1 DF, QD
     Route: 048
  4. CALCITRANS [Concomitant]
     Active Substance: CALCIUM GLUCONATE
     Indication: PRODUCT USED FOR UNKNOWN INDICATION
     Route: 065

REACTIONS (9)
  - Cardiac arrest [Unknown]
  - Hypophagia [Unknown]
  - Excessive cerumen production [Recovered/Resolved]
  - Malaise [Unknown]
  - Nausea [Unknown]
  - Feeling abnormal [Unknown]
  - Weight decreased [Unknown]
  - Breast cancer [Not Recovered/Not Resolved]
  - Labyrinthitis [Recovering/Resolving]

NARRATIVE: CASE EVENT DATE: 2015
